FAERS Safety Report 16766565 (Version 1)
Quarter: 2019Q4

REPORT INFORMATION
  Report Type: Spontaneous
  Country: US (occurrence: US)
  Receive Date: 20190831
  Receipt Date: 20190831
  Transmission Date: 20200122
  Serious: No
  Sender: FDA-Public Use
  Company Number: None

PATIENT
  Age: 72 Year
  Sex: Female
  Weight: 46.35 kg

DRUGS (3)
  1. CLOTRIMAZOLE BETAMETHASONE DIPROPIONATE CREAM [Suspect]
     Active Substance: BETAMETHASONE DIPROPIONATE\CLOTRIMAZOLE
     Indication: HAEMORRHOIDS
     Route: 061
     Dates: start: 20190820, end: 20190827
  2. VARIOUS OTC [Concomitant]
  3. HERBAL LAXATIVES [Concomitant]

REACTIONS (2)
  - Paraesthesia [None]
  - Constipation [None]

NARRATIVE: CASE EVENT DATE: 20190824
